FAERS Safety Report 5023457-4 (Version None)
Quarter: 2006Q2

REPORT INFORMATION
  Report Type: 
  Country: None (occurrence: None)
  Receive Date: 20060612
  Receipt Date: 20060531
  Transmission Date: 20061013
  Serious: Yes (Hospitalization)
  Sender: FDA-Public Use
  Company Number: 2006PK01200

PATIENT
  Sex: Male

DRUGS (2)
  1. OMEPRAZOLE [Suspect]
     Route: 048
  2. ZOPICLON [Interacting]

REACTIONS (9)
  - CIRCULATORY COLLAPSE [None]
  - CONFUSIONAL STATE [None]
  - DRUG INTERACTION [None]
  - HOT FLUSH [None]
  - LOSS OF CONSCIOUSNESS [None]
  - PARAESTHESIA [None]
  - RESTLESSNESS [None]
  - SLEEP DISORDER [None]
  - TRISMUS [None]
